FAERS Safety Report 10914629 (Version 1)
Quarter: 2015Q1

REPORT INFORMATION
  Report Type: Spontaneous
  Country: GB (occurrence: GB)
  Receive Date: 20150313
  Receipt Date: 20150313
  Transmission Date: 20150721
  Serious: Yes (Hospitalization, Other)
  Sender: FDA-Public Use
  Company Number: GB-GLAXOSMITHKLINE INC.-GB2015030260

PATIENT
  Age: 74 Year
  Sex: Male

DRUGS (2)
  1. PROGUANIL [Suspect]
     Active Substance: PROGUANIL
     Indication: MALARIA PROPHYLAXIS
     Dosage: COMBINATION PRODUCT, TAKEN FOR 8 - 10 DAYS
     Dates: start: 201501, end: 201502
  2. ATOVAQUONE. [Suspect]
     Active Substance: ATOVAQUONE
     Dosage: COMBINATION PRODUCT, TAKEN FOR 8 - 10 DAYS
     Dates: start: 201501, end: 201502

REACTIONS (3)
  - Headache [Unknown]
  - Diarrhoea [Unknown]
  - Seizure [Unknown]
